FAERS Safety Report 19463858 (Version 4)
Quarter: 2021Q4

REPORT INFORMATION
  Report Type: Spontaneous
  Country: US (occurrence: US)
  Receive Date: 20210625
  Receipt Date: 20211008
  Transmission Date: 20220303
  Serious: No
  Sender: FDA-Public Use
  Company Number: US-SANOFI-00643977

PATIENT
  Age: 76 Year
  Sex: Male

DRUGS (2)
  1. TOUJEO [Suspect]
     Active Substance: INSULIN GLARGINE
     Indication: Type 2 diabetes mellitus
     Dosage: 40 IU, QD
     Route: 065
     Dates: start: 2018
  2. TOUJEO [Suspect]
     Active Substance: INSULIN GLARGINE
     Dosage: THE PEN STOPPED DELIVERING MEDICATION AT 24 UNITS
     Route: 065

REACTIONS (4)
  - Back pain [Unknown]
  - Blood glucose increased [Unknown]
  - Incorrect dose administered by device [Unknown]
  - Device operational issue [Unknown]

NARRATIVE: CASE EVENT DATE: 20210615
